FAERS Safety Report 13297664 (Version 2)
Quarter: 2017Q1

REPORT INFORMATION
  Report Type: Spontaneous
  Country: US (occurrence: US)
  Receive Date: 20170306
  Receipt Date: 20170323
  Transmission Date: 20170428
  Serious: No
  Sender: FDA-Public Use
  Company Number: US-PFIZER INC-2017090393

PATIENT
  Sex: Male

DRUGS (1)
  1. XELJANZ XR [Suspect]
     Active Substance: TOFACITINIB CITRATE
     Dosage: 11 MG, UNK
     Dates: start: 201612

REACTIONS (16)
  - Nasal congestion [Unknown]
  - Fatigue [Unknown]
  - Back pain [Unknown]
  - Dry mouth [Unknown]
  - Arthralgia [Unknown]
  - Musculoskeletal stiffness [Unknown]
  - Dyspepsia [Unknown]
  - Abdominal pain [Unknown]
  - Hypoaesthesia [Unknown]
  - Musculoskeletal discomfort [Unknown]
  - Headache [Unknown]
  - Neck pain [Unknown]
  - Tendonitis [Recovered/Resolved]
  - Neuropathy peripheral [Recovered/Resolved]
  - Muscular weakness [Unknown]
  - Joint swelling [Recovering/Resolving]
